FAERS Safety Report 11403014 (Version 1)
Quarter: 2015Q3

REPORT INFORMATION
  Report Type: Spontaneous
  Country: US (occurrence: None)
  Receive Date: 20150820
  Receipt Date: 20150820
  Transmission Date: 20151125
  Serious: Yes (Hospitalization)
  Sender: FDA-Public Use
  Company Number: None

PATIENT
  Age: 89 Year
  Sex: Male
  Weight: 95.3 kg

DRUGS (1)
  1. METOPROLOL [Suspect]
     Active Substance: METOPROLOL
     Indication: BRADYCARDIA
     Route: 048
     Dates: start: 20100728, end: 20140923

REACTIONS (1)
  - Bradycardia [None]

NARRATIVE: CASE EVENT DATE: 20141031
